FAERS Safety Report 23923506 (Version 1)
Quarter: 2024Q2

REPORT INFORMATION
  Report Type: Other
  Country: US (occurrence: None)
  Receive Date: 20240531
  Receipt Date: 20240531
  Transmission Date: 20240716
  Serious: Yes (Other)
  Sender: FDA-Public Use
  Company Number: US-ROCHE-3374273

PATIENT

DRUGS (3)
  1. IBRUTINIB [Suspect]
     Active Substance: IBRUTINIB
     Indication: Mantle cell lymphoma
     Route: 048
  2. RITUXIMAB [Suspect]
     Active Substance: RITUXIMAB
     Indication: Mantle cell lymphoma
     Dosage: ON DAY 1, CYCLES 1-6; IF COMPLETE RESPONSE OR PARTIAL RESPONSE IS ACHIEVED, 375 MG/M2 IS ADMINISTERE
     Route: 042
  3. BENDAMUSTINE [Suspect]
     Active Substance: BENDAMUSTINE
     Indication: Mantle cell lymphoma
     Dosage: ON DAYS 1-2, CYCLES 1-6
     Route: 042

REACTIONS (6)
  - Atrial fibrillation [Unknown]
  - Haemorrhage [Unknown]
  - Hypertension [Unknown]
  - Arthralgia [Unknown]
  - Metastasis [Unknown]
  - Neoplasm malignant [Unknown]
